FAERS Safety Report 22304925 (Version 1)
Quarter: 2023Q2

REPORT INFORMATION
  Report Type: Spontaneous
  Country: US (occurrence: US)
  Receive Date: 20230510
  Receipt Date: 20230510
  Transmission Date: 20230722
  Serious: Yes (Other)
  Sender: FDA-Public Use
  Company Number: US-BRISTOL-MYERS SQUIBB COMPANY-2022-037463

PATIENT
  Age: 8 Decade
  Sex: Female

DRUGS (2)
  1. IPILIMUMAB [Suspect]
     Active Substance: IPILIMUMAB
     Indication: Malignant melanoma
  2. NIVOLUMAB [Suspect]
     Active Substance: NIVOLUMAB
     Indication: Malignant melanoma

REACTIONS (5)
  - Hypertransaminasaemia [Unknown]
  - Hypopituitarism [Unknown]
  - Immune-mediated dermatitis [Unknown]
  - Mononeuropathy multiplex [Unknown]
  - Autoimmune retinopathy [Recovering/Resolving]
